FAERS Safety Report 18158433 (Version 1)
Quarter: 2020Q3

REPORT INFORMATION
  Report Type: Report from Study
  Country: GB (occurrence: GB)
  Receive Date: 20200817
  Receipt Date: 20200817
  Transmission Date: 20201103
  Serious: Yes (Other)
  Sender: FDA-Public Use
  Company Number: GB-ROCHE-2659084

PATIENT
  Age: 62 Year
  Sex: Female

DRUGS (1)
  1. TENECTEPLASE [Suspect]
     Active Substance: TENECTEPLASE
     Indication: ISCHAEMIC STROKE
     Dosage: DOSE: W/A SINGLE WEIGHT ADJUSTED BOLUS DOSE UP TO A MAXIMUM OF 25 MG
     Route: 042
     Dates: start: 20200308

REACTIONS (2)
  - Neurological decompensation [Not Recovered/Not Resolved]
  - Cerebrovascular accident [Not Recovered/Not Resolved]

NARRATIVE: CASE EVENT DATE: 20200408
